FAERS Safety Report 4953061-5 (Version None)
Quarter: 2006Q1

REPORT INFORMATION
  Report Type: 
  Country: None (occurrence: None)
  Receive Date: 20060320
  Receipt Date: 20060306
  Transmission Date: 20060701
  Serious: Yes (Hospitalization)
  Sender: FDA-Public Use
  Company Number: CERZ-11161

PATIENT
  Age: 65 Year
  Sex: Female
  Weight: 69 kg

DRUGS (10)
  1. CEREZYME [Suspect]
     Indication: GAUCHER'S DISEASE
     Dosage: 4200 UNITS Q2WKS IV
     Route: 042
     Dates: start: 20060105, end: 20060301
  2. SINEMET [Concomitant]
  3. COMTAN [Concomitant]
  4. PARCOPA [Concomitant]
  5. REQUIP [Concomitant]
  6. WELLBUTRIN [Concomitant]
  7. SEROQUEL [Concomitant]
  8. CELEBREX [Concomitant]
  9. TOPROL-XL [Concomitant]
  10. CIPRO [Concomitant]

REACTIONS (2)
  - FALL [None]
  - FEMORAL NECK FRACTURE [None]
